FAERS Safety Report 6377996-4 (Version None)
Quarter: 2009Q3

REPORT INFORMATION
  Report Type: 
  Country: None (occurrence: None)
  Receive Date: 20090925
  Receipt Date: 20090922
  Transmission Date: 20100115
  Serious: Yes (Death, Other)
  Sender: FDA-Public Use
  Company Number: PHHY2009GB40613

PATIENT
  Age: 52 Year
  Sex: Female

DRUGS (2)
  1. ZOMETA [Suspect]
     Indication: METASTASES TO BONE
     Dosage: UNK
     Route: 065
  2. ZOMETA [Suspect]
     Indication: BREAST CANCER

REACTIONS (6)
  - BLOOD TEST ABNORMAL [None]
  - CREATININE RENAL CLEARANCE DECREASED [None]
  - DISEASE PROGRESSION [None]
  - METASTASES TO KIDNEY [None]
  - METASTASES TO LIVER [None]
  - RENAL FAILURE [None]
